FAERS Safety Report 8297165-0 (Version None)
Quarter: 2012Q2

REPORT INFORMATION
  Report Type: 
  Country: None (occurrence: None)
  Receive Date: 20120419
  Receipt Date: 20120416
  Transmission Date: 20120825
  Serious: No
  Sender: FDA-Public Use
  Company Number: US-PFIZER INC-2012093965

PATIENT
  Sex: Female

DRUGS (1)
  1. NORGESTREL AND ETHINYL ESTRADIOL [Suspect]
     Dosage: UNK
     Dates: start: 20111101

REACTIONS (4)
  - DRUG INEFFECTIVE [None]
  - MENSTRUAL DISORDER [None]
  - PREGNANCY TEST POSITIVE [None]
  - UNINTENDED PREGNANCY [None]
